FAERS Safety Report 20638083 (Version 1)
Quarter: 2022Q1

REPORT INFORMATION
  Report Type: Spontaneous
  Country: US (occurrence: US)
  Receive Date: 20220325
  Receipt Date: 20220325
  Transmission Date: 20220423
  Serious: Yes (Other)
  Sender: FDA-Public Use
  Company Number: US-SLATE RUN PHARMACEUTICALS-22US000972

PATIENT

DRUGS (7)
  1. VANCOMYCIN HYDROCHLORIDE [Suspect]
     Active Substance: VANCOMYCIN HYDROCHLORIDE
     Indication: Evidence based treatment
     Dosage: 1250 MILLIGRAM, Q 6 HR
     Route: 042
  2. VANCOMYCIN HYDROCHLORIDE [Suspect]
     Active Substance: VANCOMYCIN HYDROCHLORIDE
     Dosage: 1500 MILLIGRAM, Q 8 HR
     Route: 042
  3. HEROIN [Concomitant]
     Active Substance: DIAMORPHINE
     Indication: Drug abuser
     Route: 042
  4. NALOXONE [Concomitant]
     Active Substance: NALOXONE
     Indication: Altered state of consciousness
  5. PIPERACILLIN AND TAZOBACTAM [Concomitant]
     Active Substance: PIPERACILLIN SODIUM\TAZOBACTAM SODIUM
     Indication: Evidence based treatment
     Dosage: 3.375 MILLIGRAM, Q 8 HR
     Route: 042
  6. METHADONE [Concomitant]
     Active Substance: METHADONE HYDROCHLORIDE
     Indication: Drug withdrawal syndrome
     Dosage: 10 MILLIGRAM, PRN
  7. METHADONE [Concomitant]
     Active Substance: METHADONE HYDROCHLORIDE
     Dosage: 30 MILLIGRAM, QD

REACTIONS (6)
  - Pleural effusion [Recovering/Resolving]
  - HIV infection CDC category B [Unknown]
  - Hepatitis C [Unknown]
  - Atelectasis [Recovering/Resolving]
  - Therapeutic response decreased [Recovered/Resolved]
  - Drug level below therapeutic [Recovered/Resolved]
